FAERS Safety Report 16385957 (Version 1)
Quarter: 2019Q2

REPORT INFORMATION
  Report Type: Report from Study
  Country: US (occurrence: US)
  Receive Date: 20190603
  Receipt Date: 20190603
  Transmission Date: 20190711
  Serious: No
  Sender: FDA-Public Use
  Company Number: US-SUNOVION-2019SUN002155

PATIENT
  Weight: 76.19 kg

DRUGS (6)
  1. LONHALA MAGNAIR [Suspect]
     Active Substance: GLYCOPYRROLATE
     Dosage: 25 MCG/ML
     Route: 055
     Dates: start: 20190415
  2. BUDESONIDE ALMUS [Concomitant]
     Dosage: 0.5 MG/2 ML
     Route: 065
     Dates: start: 20181124
  3. ADVAIR HFA [Concomitant]
     Active Substance: FLUTICASONE PROPIONATE\SALMETEROL XINAFOATE
     Dosage: 500 MCG - 50 MCG/DOSE POWDER FOR INHALATION
     Route: 065
     Dates: start: 20180913
  4. PROAIR HFA [Concomitant]
     Active Substance: ALBUTEROL SULFATE
     Dosage: 90 MCG
     Route: 065
     Dates: start: 20180717
  5. IPRATROPIUM AERONATIV [Concomitant]
     Dosage: 0.5 MG - 3 MG (2.5 MG BASE)/ 3 ML
     Route: 065
     Dates: start: 20190326
  6. SPIRIVA RESPIMAT [Concomitant]
     Active Substance: TIOTROPIUM BROMIDE
     Dosage: 18 MCG
     Route: 065
     Dates: start: 20181219

REACTIONS (1)
  - Dyspnoea [Recovered/Resolved]
